FAERS Safety Report 23647965 (Version 4)
Quarter: 2025Q3

REPORT INFORMATION
  Report Type: Spontaneous
  Country: US (occurrence: US)
  Receive Date: 20240319
  Receipt Date: 20250706
  Transmission Date: 20251020
  Serious: No
  Sender: SANOFI AVENTIS
  Company Number: US-SA-SAC20240315001183

PATIENT
  Sex: Female

DRUGS (18)
  1. DUPIXENT [Suspect]
     Active Substance: DUPILUMAB
     Indication: Asthma
     Dosage: 300 MG, QOW
     Route: 058
  2. DUPIXENT [Suspect]
     Active Substance: DUPILUMAB
     Indication: Asthma
  3. MOUNJARO [Concomitant]
     Active Substance: TIRZEPATIDE
  4. MOUNJARO [Concomitant]
     Active Substance: TIRZEPATIDE
  5. ALBUTEROL SULFATE [Concomitant]
     Active Substance: ALBUTEROL SULFATE
  6. ALENDRONATE [Concomitant]
     Active Substance: ALENDRONATE SODIUM
  7. ATORVASTATIN [Concomitant]
     Active Substance: ATORVASTATIN
  8. BREZTRI [Concomitant]
     Active Substance: BUDESONIDE\FORMOTEROL\GLYCOPYRROLATE
  9. EPINEPHRINE [Concomitant]
     Active Substance: EPINEPHRINE
  10. FENOFIBRATE [Concomitant]
     Active Substance: FENOFIBRATE
  11. METOPROLOL SUCCINATE [Concomitant]
     Active Substance: METOPROLOL SUCCINATE
  12. PANTOPRAZOLE [Concomitant]
     Active Substance: PANTOPRAZOLE
  13. SERTRALINE [Concomitant]
     Active Substance: SERTRALINE HYDROCHLORIDE
  14. TELMISARTAN [Concomitant]
     Active Substance: TELMISARTAN
  15. ZINC [Concomitant]
     Active Substance: ZINC
  16. ASCORBIC ACID [Concomitant]
     Active Substance: ASCORBIC ACID
  17. VITAMIN C [Concomitant]
     Active Substance: ASCORBIC ACID
  18. MOUNJARO [Concomitant]
     Active Substance: TIRZEPATIDE

REACTIONS (20)
  - Glycosylated haemoglobin increased [Unknown]
  - Dyspnoea [Not Recovered/Not Resolved]
  - Anxiety [Not Recovered/Not Resolved]
  - Weight increased [Recovering/Resolving]
  - Inflammation [Not Recovered/Not Resolved]
  - Acrochordon [Not Recovered/Not Resolved]
  - Dyspepsia [Not Recovered/Not Resolved]
  - Nasopharyngitis [Not Recovered/Not Resolved]
  - Depression [Not Recovered/Not Resolved]
  - Initial insomnia [Not Recovered/Not Resolved]
  - Decreased appetite [Not Recovered/Not Resolved]
  - Dyspnoea exertional [Not Recovered/Not Resolved]
  - Rash [Not Recovered/Not Resolved]
  - Arthralgia [Not Recovered/Not Resolved]
  - Injection site bruising [Not Recovered/Not Resolved]
  - Injection site pain [Not Recovered/Not Resolved]
  - Wrong technique in product usage process [Unknown]
  - Accidental exposure to product [Unknown]
  - Therapeutic response shortened [Unknown]
  - Exposure via skin contact [Unknown]
